FAERS Safety Report 14674584 (Version 1)
Quarter: 2018Q1

REPORT INFORMATION
  Report Type: Report from Study
  Country: US (occurrence: US)
  Receive Date: 20180323
  Receipt Date: 20180323
  Transmission Date: 20180509
  Serious: Yes (Other)
  Sender: FDA-Public Use
  Company Number: US-JNJFOC-20180225476

PATIENT
  Age: 72 Year
  Sex: Male

DRUGS (7)
  1. PREDNISONE. [Concomitant]
     Active Substance: PREDNISONE
  2. IMBRUVICA [Suspect]
     Active Substance: IBRUTINIB
     Indication: MANTLE CELL LYMPHOMA
     Route: 048
     Dates: start: 20180206
  3. XARELTO [Suspect]
     Active Substance: RIVAROXABAN
     Indication: PRODUCT USED FOR UNKNOWN INDICATION
     Route: 065
  4. CHLORTHALIDONE. [Concomitant]
     Active Substance: CHLORTHALIDONE
  5. IMBRUVICA [Suspect]
     Active Substance: IBRUTINIB
     Indication: MANTLE CELL LYMPHOMA
     Route: 048
     Dates: start: 20180205
  6. LISINOPRIL. [Concomitant]
     Active Substance: LISINOPRIL
  7. METHOTREXATE. [Concomitant]
     Active Substance: METHOTREXATE

REACTIONS (8)
  - Blister [Not Recovered/Not Resolved]
  - Secretion discharge [Not Recovered/Not Resolved]
  - Contusion [Not Recovered/Not Resolved]
  - Epistaxis [Not Recovered/Not Resolved]
  - Pollakiuria [Not Recovered/Not Resolved]
  - Weight decreased [Not Recovered/Not Resolved]
  - Impaired healing [Not Recovered/Not Resolved]
  - Wound [Not Recovered/Not Resolved]

NARRATIVE: CASE EVENT DATE: 2018
